FAERS Safety Report 17345868 (Version 1)
Quarter: 2020Q1

REPORT INFORMATION
  Report Type: Spontaneous
  Country: CA (occurrence: CA)
  Receive Date: 20200129
  Receipt Date: 20200129
  Transmission Date: 20200409
  Serious: Yes (Other)
  Sender: FDA-Public Use
  Company Number: CA-PFIZER INC-2020035355

PATIENT
  Age: 2 Year
  Sex: Female
  Weight: 14 kg

DRUGS (3)
  1. ADVIL [Suspect]
     Active Substance: IBUPROFEN
     Indication: PYREXIA
     Dosage: 150 MG, UNK
     Route: 048
  2. TAMIFLU [Suspect]
     Active Substance: OSELTAMIVIR PHOSPHATE
     Dosage: 30 MG, 2X/DAY
     Route: 048
  3. TYLENOL [Suspect]
     Active Substance: ACETAMINOPHEN
     Dosage: 180 MG, UNK

REACTIONS (2)
  - Body temperature decreased [Recovered/Resolved]
  - Product use issue [Unknown]
